FAERS Safety Report 10430527 (Version 3)
Quarter: 2014Q3

REPORT INFORMATION
  Report Type: Report from Study
  Country: US (occurrence: US)
  Receive Date: 20140904
  Receipt Date: 20140929
  Transmission Date: 20150326
  Serious: Yes (Other)
  Sender: FDA-Public Use
  Company Number: US-SA-LEUK-1000353

PATIENT
  Age: 79 Year
  Sex: Male
  Weight: 79.1 kg

DRUGS (6)
  1. SARGRAMOSTIM [Suspect]
     Active Substance: SARGRAMOSTIM
     Indication: MALIGNANT MELANOMA
     Dosage: 250 MCG, QD, INDUCTION THERAPY (CYCLE1-4) (ON DAYS 1-14)
     Route: 058
     Dates: start: 20110322
  2. IPILIMUMAB [Suspect]
     Active Substance: IPILIMUMAB
     Indication: MALIGNANT MELANOMA
     Dosage: 10 MG/KG, UNK, , MAINTENANCE THERAPY (CYCLE16), (OVER 90 MIN ON DAY 1 EVERY 12 WEEKS)
     Route: 042
     Dates: start: 20120131, end: 20120131
  3. PURINE ANALOGUES [Concomitant]
     Indication: PRODUCT USED FOR UNKNOWN INDICATION
     Dosage: UNK
  4. SARGRAMOSTIM [Suspect]
     Active Substance: SARGRAMOSTIM
     Indication: MALIGNANT MELANOMA
     Dosage: 250 MCG, QD, MAINTENANCE THERAPY (CYCLE16), (ON DAY 1-14)
     Route: 058
     Dates: start: 20120131, end: 20120213
  5. IPILIMUMAB [Suspect]
     Active Substance: IPILIMUMAB
     Indication: MALIGNANT MELANOMA
     Dosage: 10 MG/KG, UNK, INDUCTION THERAPY (CYCLE1-4) (OVER 90 MIN ON DAY 1)
     Route: 042
     Dates: start: 20110322, end: 20110322
  6. TEMOZOLOMIDE [Concomitant]
     Active Substance: TEMOZOLOMIDE
     Indication: PRODUCT USED FOR UNKNOWN INDICATION
     Dosage: UNK

REACTIONS (3)
  - Malignant melanoma [Not Recovered/Not Resolved]
  - Rash erythematous [Recovered/Resolved]
  - Pain in extremity [Unknown]

NARRATIVE: CASE EVENT DATE: 201102
